FAERS Safety Report 24792311 (Version 1)
Quarter: 2024Q4

REPORT INFORMATION
  Report Type: Spontaneous
  Country: DE (occurrence: DE)
  Receive Date: 20241231
  Receipt Date: 20241231
  Transmission Date: 20250115
  Serious: Yes (Hospitalization)
  Sender: TAKEDA
  Company Number: DE-DCGMA-24204472

PATIENT
  Age: 52 Year
  Sex: Female
  Weight: 70 kg

DRUGS (4)
  1. ENTYVIO [Suspect]
     Active Substance: VEDOLIZUMAB
     Indication: Colitis ulcerative
     Dosage: 300 MILLIGRAM
  2. METHYLPREDNISOLONE [Concomitant]
     Active Substance: METHYLPREDNISOLONE
     Dosage: 250 MILLIGRAM, BID
  3. CLEMASTINE FUMARATE [Concomitant]
     Active Substance: CLEMASTINE FUMARATE
     Dosage: UNK
  4. SUPRARENIN [Concomitant]
     Active Substance: EPINEPHRINE
     Dosage: 0.5 MILLIGRAM

REACTIONS (4)
  - Ear discomfort [Recovering/Resolving]
  - Eye pruritus [Recovering/Resolving]
  - Lip pruritus [Recovering/Resolving]
  - Throat tightness [Recovering/Resolving]

NARRATIVE: CASE EVENT DATE: 20241114
